FAERS Safety Report 9633112 (Version 2)
Quarter: 2013Q4

REPORT INFORMATION
  Report Type: Spontaneous
  Country: GB (occurrence: GB)
  Receive Date: 20131019
  Receipt Date: 20131019
  Transmission Date: 20140711
  Serious: Yes (Other)
  Sender: FDA-Public Use
  Company Number: GB-ROCHE-1265446

PATIENT
  Age: 60 Year
  Sex: Female

DRUGS (13)
  1. MABTHERA [Suspect]
     Indication: RHEUMATOID ARTHRITIS
     Route: 042
     Dates: start: 20111130, end: 20121213
  2. MORPHINE SULPHATE SR [Concomitant]
     Indication: PAIN
     Route: 048
  3. SOLPADOL [Concomitant]
     Indication: PAIN
     Route: 048
  4. INDOCID [Concomitant]
     Indication: PAIN
     Route: 048
  5. OMEPRAZOLE [Concomitant]
     Indication: PROPHYLAXIS AGAINST GASTROINTESTINAL ULCER
     Route: 048
  6. FERROUS SULPHATE [Concomitant]
     Indication: ANAEMIA
     Route: 048
  7. LISINOPRIL [Concomitant]
     Indication: HYPERTENSION
     Route: 048
  8. FUROSEMIDE [Concomitant]
     Indication: OEDEMA PERIPHERAL
     Route: 048
  9. PREGABALIN [Concomitant]
     Indication: PAIN
     Route: 048
  10. ADCAL - D3 [Concomitant]
     Route: 048
  11. SIMVASTATIN [Concomitant]
     Indication: BLOOD CHOLESTEROL
     Route: 048
  12. AMITRIPTYLINE [Concomitant]
     Indication: PAIN
     Route: 048
  13. QUININE SULFATE [Concomitant]
     Indication: MUSCLE SPASMS
     Route: 048

REACTIONS (2)
  - Chest pain [Recovering/Resolving]
  - Cough [Recovering/Resolving]
